FAERS Safety Report 24770766 (Version 1)
Quarter: 2024Q4

REPORT INFORMATION
  Report Type: Spontaneous
  Country: FR (occurrence: FR)
  Receive Date: 20241224
  Receipt Date: 20241224
  Transmission Date: 20250115
  Serious: Yes (Death, Hospitalization, Other)
  Sender: ACCORD
  Company Number: FR-Accord-460267

PATIENT
  Age: 56 Year
  Sex: Female

DRUGS (1)
  1. CISPLATIN [Suspect]
     Active Substance: CISPLATIN
     Indication: Ear, nose and throat disorder
     Route: 042
     Dates: start: 20241004, end: 20241128

REACTIONS (4)
  - Malnutrition [Unknown]
  - Neutropenia [Unknown]
  - Renal failure [Unknown]
  - Death [Fatal]

NARRATIVE: CASE EVENT DATE: 20241004
